FAERS Safety Report 6658065 (Version 16)
Quarter: 2013Q3

REPORT INFORMATION
  Report Type: Spontaneous
  Country: US (occurrence: US)
  Receive Date: 20080605
  Receipt Date: 20130819
  Transmission Date: 20140515
  Serious: Yes (Other)
  Sender: FDA-Public Use
  Company Number: PHEH2008US04921

PATIENT
  Age: 78 Year
  Sex: Male

DRUGS (23)
  1. ZOMETA [Suspect]
     Indication: PROPHYLAXIS
     Dosage: 4 MG, QMO
     Route: 042
     Dates: start: 20050222
  2. BENICAR [Concomitant]
     Dosage: 40/25 MG, QD
  3. COLACE [Concomitant]
     Dosage: 100 MG, BID
  4. METAMUCIL [Concomitant]
     Dosage: UNK UKN, BID
  5. ZANTAC [Concomitant]
     Dosage: UNK UKN, PRN
  6. PEPCID [Concomitant]
  7. ADVIL [Concomitant]
  8. PERCOCET [Concomitant]
     Dosage: 5MG/325 MG, UNK
  9. DIPRIVAN [Concomitant]
     Dosage: 10 MG, UNK
  10. EPHEDRINE SULFATE [Concomitant]
     Dosage: UNK UKN, UNK
  11. ROBINUL [Concomitant]
     Dosage: UNK UKN, UNK
  12. ZEMURON [Concomitant]
     Dosage: 10 MG, UNK
  13. LIDOCAINE [Concomitant]
     Dosage: UNK UKN, UNK
  14. FENTANYL CITRATE [Concomitant]
     Dosage: 0.05 MG, UNK
  15. MIDAZOLAM [Concomitant]
     Dosage: 2 MG, UNK
  16. MEPERIDINE HYDROCHLORIDE [Concomitant]
     Dosage: 50 MG, UNK
  17. PROMETHAZINE HYDROCHLORIDE [Concomitant]
     Dosage: 25 MG, UNK
  18. SODIUM CHLORIDE [Concomitant]
     Dosage: UNK UKN, UNK
  19. DIAZEPAM [Concomitant]
     Dosage: 10 MG, UNK
  20. CITRUCEL [Concomitant]
  21. ATENOLOL [Concomitant]
  22. HISTRELIN [Concomitant]
  23. LISINOPRIL [Concomitant]

REACTIONS (51)
  - Mitral valve incompetence [Unknown]
  - Ventricular hypertrophy [Unknown]
  - Diabetes mellitus [Unknown]
  - Metastases to bone [Unknown]
  - Osteonecrosis of jaw [Unknown]
  - Pain [Unknown]
  - Oral pain [Unknown]
  - Mouth ulceration [Unknown]
  - Exposed bone in jaw [Unknown]
  - Anaemia [Unknown]
  - Dyslipidaemia [Unknown]
  - Asthenia [Unknown]
  - Nausea [Unknown]
  - Eructation [Unknown]
  - Oral herpes [Unknown]
  - Hunger [Recovered/Resolved with Sequelae]
  - Abdominal pain [Recovering/Resolving]
  - Cholelithiasis [Unknown]
  - Cholecystitis [Unknown]
  - Bile duct obstruction [Unknown]
  - Aortic valve incompetence [Unknown]
  - Coronary artery stenosis [Unknown]
  - Sinus bradycardia [Unknown]
  - Tricuspid valve incompetence [Unknown]
  - Dizziness [Unknown]
  - Thyroid neoplasm [Unknown]
  - Orthostatic hypotension [Unknown]
  - Presyncope [Unknown]
  - Renal failure acute [Unknown]
  - Dilatation atrial [Unknown]
  - Pleural fibrosis [Unknown]
  - Pulmonary mass [Unknown]
  - Lymph node calcification [Unknown]
  - Vitamin D deficiency [Unknown]
  - Sinusitis [Unknown]
  - Osteopenia [Unknown]
  - Goitre [Unknown]
  - Carotid arteriosclerosis [Unknown]
  - Malaise [Unknown]
  - Urinary incontinence [Recovering/Resolving]
  - Arthralgia [Unknown]
  - Constipation [Unknown]
  - Myalgia [Unknown]
  - Cerebral hypoperfusion [Unknown]
  - Pancytopenia [Unknown]
  - Contusion [Unknown]
  - Pruritus [Unknown]
  - Fatigue [Unknown]
  - Hypovolaemia [Unknown]
  - Urinary tract infection [Unknown]
  - Gynaecomastia [Unknown]
